FAERS Safety Report 15955315 (Version 1)
Quarter: 2019Q1

REPORT INFORMATION
  Report Type: Spontaneous
  Country: US (occurrence: US)
  Receive Date: 20190213
  Receipt Date: 20190213
  Transmission Date: 20190417
  Serious: Yes (Life-Threatening, Hospitalization, Other)
  Sender: FDA-Public Use
  Company Number: US-MACLEODS PHARMACEUTICALS US LTD-MAC2019020041

PATIENT

DRUGS (1)
  1. METFORMIN HYDROCHLORIDE 850MG TABLET [Suspect]
     Active Substance: METFORMIN HYDROCHLORIDE
     Indication: PRODUCT USED FOR UNKNOWN INDICATION
     Dosage: 850 MILLIGRAM, TWO 850 MG METFORMIN TABLETS SEVERAL TIMES DAILY
     Route: 048

REACTIONS (19)
  - Acute kidney injury [Not Recovered/Not Resolved]
  - Hallucination, visual [Recovering/Resolving]
  - Lactic acidosis [Recovering/Resolving]
  - Blood glucose decreased [Recovering/Resolving]
  - Hypothermia [Recovering/Resolving]
  - Prescription drug used without a prescription [None]
  - Metabolic acidosis [Recovering/Resolving]
  - Renal tubular necrosis [Recovering/Resolving]
  - Hypotension [Recovering/Resolving]
  - Abdominal pain [None]
  - Drug abuse [Recovering/Resolving]
  - Toxicity to various agents [Recovering/Resolving]
  - Cachexia [None]
  - Dyspnoea [None]
  - Haemodialysis [None]
  - Disorientation [Recovering/Resolving]
  - Shock [Recovering/Resolving]
  - Confusional state [None]
  - Influenza like illness [None]
